FAERS Safety Report 16346463 (Version 2)
Quarter: 2020Q1

REPORT INFORMATION
  Report Type: Spontaneous
  Country: CA (occurrence: CA)
  Receive Date: 20190523
  Receipt Date: 20200204
  Transmission Date: 20200409
  Serious: Yes (Other)
  Sender: FDA-Public Use
  Company Number: CA-MALLINCKRODT-T201903800

PATIENT
  Age: 84 Year
  Sex: Male

DRUGS (5)
  1. METHADOSE [Suspect]
     Active Substance: METHADONE HYDROCHLORIDE
     Indication: CAUDA EQUINA SYNDROME
     Dosage: 2 MILLIGRAM, Q12H
     Route: 065
  2. DEXAMETHASONE. [Suspect]
     Active Substance: DEXAMETHASONE
     Indication: CAUDA EQUINA SYNDROME
     Dosage: 8 MG, Q12H
     Route: 065
  3. MORPHINE [Suspect]
     Active Substance: MORPHINE
     Indication: CAUDA EQUINA SYNDROME
     Dosage: 15 MG, Q12H
     Route: 065
  4. ACETAMINOPHEN. [Suspect]
     Active Substance: ACETAMINOPHEN
     Indication: CAUDA EQUINA SYNDROME
     Dosage: 1000 MG, Q6H
     Route: 065
  5. PREGABALIN. [Suspect]
     Active Substance: PREGABALIN
     Indication: CAUDA EQUINA SYNDROME
     Dosage: 100 MILLIGRAM, QHS
     Route: 065

REACTIONS (4)
  - Somnolence [Unknown]
  - Delirium [Unknown]
  - Off label use [Unknown]
  - Product use in unapproved indication [Unknown]
